FAERS Safety Report 24196358 (Version 1)
Quarter: 2024Q3

REPORT INFORMATION
  Report Type: Report from Study
  Country: US (occurrence: US)
  Receive Date: 20240809
  Receipt Date: 20240809
  Transmission Date: 20241017
  Serious: Yes (Hospitalization)
  Sender: ABBVIE
  Company Number: US-ABBVIE-5870949

PATIENT
  Age: 69 Year
  Sex: Female

DRUGS (1)
  1. SKYRIZI [Suspect]
     Active Substance: RISANKIZUMAB-RZAA
     Indication: Psoriasis
     Route: 058
     Dates: start: 20240322

REACTIONS (2)
  - Urinary tract infection [Recovering/Resolving]
  - Dementia [Unknown]

NARRATIVE: CASE EVENT DATE: 20240701
